FAERS Safety Report 4698400-8 (Version None)
Quarter: 2005Q2

REPORT INFORMATION
  Report Type: 
  Country: None (occurrence: None)
  Receive Date: 20050621
  Receipt Date: 20050606
  Transmission Date: 20051028
  Serious: Yes (Other)
  Sender: FDA-Public Use
  Company Number: 215062

PATIENT
  Age: 57 Year
  Sex: Male
  Weight: 57.9 kg

DRUGS (7)
  1. RITUXAN [Suspect]
     Indication: NON-HODGKIN'S LYMPHOMA
     Dosage: 650 MG, INTRAVENOUS
     Route: 042
     Dates: start: 20011129, end: 20011129
  2. CYCLOPHOSPHAMIDE [Concomitant]
  3. NOVANTRONE [Concomitant]
  4. ONCOVIN [Concomitant]
  5. PREDONINE (PREDNISOLONE ACETATE, PREDNISOLONE, PREDNISOLONE SODIUM SUC [Concomitant]
  6. POLARAMINE [Concomitant]
  7. LOXONIN (LOXOPROFEN SODIUM) [Concomitant]

REACTIONS (1)
  - TREMOR [None]
